FAERS Safety Report 4882196-0 (Version None)
Quarter: 2006Q1

REPORT INFORMATION
  Report Type: 
  Country: None (occurrence: None)
  Receive Date: 20060117
  Receipt Date: 20051010
  Transmission Date: 20060701
  Serious: Yes (Hospitalization)
  Sender: FDA-Public Use
  Company Number: US-MERCK-0510USA06561

PATIENT
  Age: 73 Year
  Sex: Male
  Weight: 128 kg

DRUGS (5)
  1. VIOXX [Suspect]
     Indication: PAIN
     Route: 048
     Dates: start: 20011101, end: 20040201
  2. VIOXX [Suspect]
     Route: 048
     Dates: start: 20011101, end: 20040201
  3. VIOXX [Suspect]
     Indication: ARTHRITIS
     Route: 048
     Dates: start: 20011101, end: 20040201
  4. VIOXX [Suspect]
     Route: 048
     Dates: start: 20011101, end: 20040201
  5. TYLENOL (CAPLET) [Concomitant]
     Route: 065

REACTIONS (2)
  - DYSPNOEA [None]
  - ISCHAEMIC STROKE [None]
